FAERS Safety Report 6386816-3 (Version None)
Quarter: 2009Q4

REPORT INFORMATION
  Report Type: 
  Country: None (occurrence: None)
  Receive Date: 20091002
  Receipt Date: 20090928
  Transmission Date: 20100525
  Serious: Yes (Death, Hospitalization)
  Sender: FDA-Public Use
  Company Number: B0595692A

PATIENT
  Sex: Male

DRUGS (1)
  1. ARIXTRA [Suspect]
     Route: 058
     Dates: start: 20090922, end: 20090927

REACTIONS (3)
  - CHEST PAIN [None]
  - DEATH [None]
  - PULMONARY EMBOLISM [None]
